FAERS Safety Report 17374622 (Version 3)
Quarter: 2021Q1

REPORT INFORMATION
  Report Type: Spontaneous
  Country: US (occurrence: US)
  Receive Date: 20200205
  Receipt Date: 20210112
  Transmission Date: 20210419
  Serious: No
  Sender: FDA-Public Use
  Company Number: US-PFIZER INC-2020047867

PATIENT
  Age: 55 Year
  Sex: Female

DRUGS (2)
  1. XELJANZ XR [Suspect]
     Active Substance: TOFACITINIB CITRATE
     Dosage: 11 MG, 1X/DAY
     Route: 048
     Dates: start: 20201210
  2. XELJANZ XR [Suspect]
     Active Substance: TOFACITINIB CITRATE
     Indication: RHEUMATOID ARTHRITIS
     Dosage: 11 MG, DAILY
     Route: 048
     Dates: start: 2017, end: 20200801

REACTIONS (9)
  - Sensitivity to weather change [Unknown]
  - Peripheral swelling [Unknown]
  - Sinus congestion [Unknown]
  - Product dose omission in error [Unknown]
  - Pain [Recovering/Resolving]
  - Movement disorder [Unknown]
  - Hypersensitivity [Unknown]
  - Dysphonia [Unknown]
  - Gait inability [Unknown]
